FAERS Safety Report 5108640-1 (Version None)
Quarter: 2006Q3

REPORT INFORMATION
  Report Type: 
  Country: None (occurrence: None)
  Receive Date: 20060915
  Receipt Date: 20060830
  Transmission Date: 20061208
  Serious: Yes (Hospitalization)
  Sender: FDA-Public Use
  Company Number: 229516

PATIENT
  Age: 56 Year
  Sex: Female
  Weight: 88 kg

DRUGS (3)
  1. HERCEPTIN [Suspect]
     Indication: BREAST CANCER
     Dosage: 6 MG/KG, Q3W, INTRAVENOUS
     Route: 042
     Dates: start: 20051024
  2. PERENTEROL (YEAST) [Concomitant]
  3. IMODIUM [Concomitant]

REACTIONS (2)
  - BLOOD CHROMOGRANIN A INCREASED [None]
  - DIARRHOEA [None]
